FAERS Safety Report 25605243 (Version 4)
Quarter: 2025Q3

REPORT INFORMATION
  Report Type: Spontaneous
  Country: JP (occurrence: JP)
  Receive Date: 20250725
  Receipt Date: 20250930
  Transmission Date: 20251021
  Serious: Yes (Other)
  Sender: ROCHE
  Company Number: JP-CHUGAI-2025023301

PATIENT
  Age: 78 Year
  Sex: Female

DRUGS (4)
  1. LUNSUMIO [Suspect]
     Active Substance: MOSUNETUZUMAB-AXGB
     Indication: Follicular lymphoma
     Dosage: 1 MILLIGRAM, ONCE/WEEK
     Route: 042
  2. LUNSUMIO [Suspect]
     Active Substance: MOSUNETUZUMAB-AXGB
     Route: 042
  3. LUNSUMIO [Suspect]
     Active Substance: MOSUNETUZUMAB-AXGB
     Route: 042
  4. LUNSUMIO [Suspect]
     Active Substance: MOSUNETUZUMAB-AXGB
     Route: 042

REACTIONS (5)
  - Cytokine release syndrome [Recovered/Resolved]
  - Cytomegalovirus infection [Recovered/Resolved]
  - Haemophagocytic lymphohistiocytosis [Recovered/Resolved]
  - Vomiting [Unknown]
  - Cytokine release syndrome [Unknown]

NARRATIVE: CASE EVENT DATE: 20250701
